FAERS Safety Report 25880958 (Version 2)
Quarter: 2025Q4

REPORT INFORMATION
  Report Type: Spontaneous
  Country: US (occurrence: US)
  Receive Date: 20251004
  Receipt Date: 20251216
  Transmission Date: 20260117
  Serious: No
  Sender: SANOFI AVENTIS
  Company Number: US-SA-2025SA293480

PATIENT
  Age: 35 Year
  Sex: Male

DRUGS (4)
  1. ALPROLIX [Suspect]
     Active Substance: EFTRENONACOG ALFA
     Indication: Factor IX deficiency
     Dosage: 9200 U (8280-10120), QW (EVERY 7 DAYS)
     Route: 042
     Dates: start: 202302
  2. ALPROLIX [Suspect]
     Active Substance: EFTRENONACOG ALFA
     Indication: Factor IX deficiency
     Dosage: 9200 U (8280-10120), QW (EVERY 7 DAYS)
     Route: 042
     Dates: start: 202302
  3. ALPROLIX [Suspect]
     Active Substance: EFTRENONACOG ALFA
     Dosage: 9200 U (8280-10120), PRN (AS NEEDED FOR MAJOR BLEEDS ONCE AND REPEAT EVERY 6 TO 8 HOURS THEN GO TO E
     Route: 042
     Dates: start: 202302
  4. ALPROLIX [Suspect]
     Active Substance: EFTRENONACOG ALFA
     Dosage: 9200 U (8280-10120), PRN (AS NEEDED FOR MAJOR BLEEDS ONCE AND REPEAT EVERY 6 TO 8 HOURS THEN GO TO E
     Route: 042
     Dates: start: 202302

REACTIONS (2)
  - Fall [Unknown]
  - Traumatic haemorrhage [Unknown]

NARRATIVE: CASE EVENT DATE: 20250911
